FAERS Safety Report 7903270-8 (Version None)
Quarter: 2011Q4

REPORT INFORMATION
  Report Type: 
  Country: None (occurrence: None)
  Receive Date: 20111109
  Receipt Date: 20111026
  Transmission Date: 20120403
  Serious: Yes (Hospitalization)
  Sender: FDA-Public Use
  Company Number: TW-ASTELLAS-2011US007367

PATIENT
  Sex: Female
  Weight: 60 kg

DRUGS (1)
  1. ERLOTINIB HYDROCHLORIDE [Suspect]
     Indication: NON-SMALL CELL LUNG CANCER
     Dosage: 150 MG, UID/QD
     Route: 048
     Dates: start: 20110920, end: 20111024

REACTIONS (7)
  - RESPIRATORY RATE INCREASED [None]
  - HEART RATE DECREASED [None]
  - CORONARY ARTERY DISEASE [None]
  - ASTHENIA [None]
  - BLOOD PRESSURE DECREASED [None]
  - TROPONIN I INCREASED [None]
  - DECREASED APPETITE [None]
